FAERS Safety Report 5413538-5 (Version None)
Quarter: 2007Q3

REPORT INFORMATION
  Report Type: 
  Country: None (occurrence: None)
  Receive Date: 20070810
  Receipt Date: 20070730
  Transmission Date: 20080115
  Serious: Yes (Other)
  Sender: FDA-Public Use
  Company Number: 235904K07USA

PATIENT
  Age: 54 Year
  Sex: Female

DRUGS (4)
  1. REBIF [Suspect]
     Indication: MULTIPLE SCLEROSIS
     Dosage: 44 MCG, 3 IN 1 WEEKS, SUBCUTANEOUS
     Route: 058
     Dates: start: 20060315, end: 20070101
  2. PLAVIX [Concomitant]
  3. CLONIDINE [Concomitant]
  4. ASPIRIN [Concomitant]

REACTIONS (3)
  - BILIARY DILATATION [None]
  - CARDIAC FAILURE CONGESTIVE [None]
  - HEPATITIS B [None]
